FAERS Safety Report 5140792-X (Version None)
Quarter: 2006Q4

REPORT INFORMATION
  Report Type: 
  Country: None (occurrence: None)
  Receive Date: 20061024
  Receipt Date: 20061006
  Transmission Date: 20070319
  Serious: Yes (Other)
  Sender: FDA-Public Use
  Company Number: DE200609000521

PATIENT
  Age: 8 Year
  Sex: Female

DRUGS (1)
  1. FLUCTIN [Suspect]
     Indication: MUTISM
     Dosage: 20 MG, DAILY (1/D), ORAL
     Route: 048
     Dates: start: 20050601

REACTIONS (1)
  - ADRENOGENITAL SYNDROME [None]
